FAERS Safety Report 16348884 (Version 1)
Quarter: 2019Q2

REPORT INFORMATION
  Report Type: Spontaneous
  Country: CA (occurrence: CA)
  Receive Date: 20190523
  Receipt Date: 20190523
  Transmission Date: 20190711
  Serious: Yes (Death, Other)
  Sender: FDA-Public Use
  Company Number: CA-TEVA-2019-CA-1052037

PATIENT

DRUGS (12)
  1. NIFEDIPINE. [Suspect]
     Active Substance: NIFEDIPINE
     Indication: PRODUCT USED FOR UNKNOWN INDICATION
     Route: 064
  2. MISOPROSTOL. [Suspect]
     Active Substance: MISOPROSTOL
     Indication: PRODUCT USED FOR UNKNOWN INDICATION
     Route: 064
  3. HYDRALAZINE [Suspect]
     Active Substance: HYDRALAZINE HYDROCHLORIDE
     Route: 064
  4. HYDRALAZINE [Suspect]
     Active Substance: HYDRALAZINE HYDROCHLORIDE
     Indication: HYPERTENSION
     Route: 064
  5. INSTA-GLUCOSE [Suspect]
     Active Substance: DEXTROSE
     Indication: PRODUCT USED FOR UNKNOWN INDICATION
     Route: 064
  6. OXYTOCIN. [Suspect]
     Active Substance: OXYTOCIN
     Indication: PRODUCT USED FOR UNKNOWN INDICATION
     Route: 064
  7. FOLIC ACID 1MG [Suspect]
     Active Substance: FOLIC ACID
     Indication: PRODUCT USED FOR UNKNOWN INDICATION
     Route: 064
  8. SALBUTAMOL SULFATE [Suspect]
     Active Substance: ALBUTEROL SULFATE
     Indication: PRODUCT USED FOR UNKNOWN INDICATION
     Route: 064
  9. MAGNESIUM SULFATE. [Suspect]
     Active Substance: MAGNESIUM SULFATE
     Indication: PRODUCT USED FOR UNKNOWN INDICATION
     Route: 064
  10. SODIUM BICARBONATE. [Suspect]
     Active Substance: SODIUM BICARBONATE
     Indication: PRODUCT USED FOR UNKNOWN INDICATION
     Route: 064
  11. VITAMIN D [ERGOCALCIFEROL] [Suspect]
     Active Substance: ERGOCALCIFEROL
     Indication: PRODUCT USED FOR UNKNOWN INDICATION
     Route: 064
  12. CALCIUM GLUCONATE. [Suspect]
     Active Substance: CALCIUM GLUCONATE
     Indication: PRODUCT USED FOR UNKNOWN INDICATION
     Route: 064

REACTIONS (5)
  - Condition aggravated [Fatal]
  - Foetal death [Fatal]
  - Vascular resistance systemic increased [Fatal]
  - Foetal exposure during pregnancy [Fatal]
  - Small for dates baby [Fatal]
